FAERS Safety Report 24438828 (Version 1)
Quarter: 2024Q4

REPORT INFORMATION
  Report Type: Spontaneous
  Country: JP (occurrence: JP)
  Receive Date: 20241015
  Receipt Date: 20241015
  Transmission Date: 20250114
  Serious: Yes (Death)
  Sender: BAYER HEALTHCARE PHARMACEUTICALS INC.
  Company Number: JP-BAYER-2024A146476

PATIENT
  Age: 69 Year
  Sex: Male

DRUGS (2)
  1. NUBEQA [Suspect]
     Active Substance: DAROLUTAMIDE
     Indication: Prostate cancer
     Dosage: 600 MG, BID, AFTER BREAKFAST AND DINNER
     Route: 048
     Dates: start: 20230920, end: 20240117
  2. DOCETAXEL [Concomitant]
     Active Substance: DOCETAXEL
     Indication: Prostate cancer
     Dates: start: 20230927, end: 20231122

REACTIONS (1)
  - Prostate cancer [Fatal]

NARRATIVE: CASE EVENT DATE: 20231213
